FAERS Safety Report 18697252 (Version 2)
Quarter: 2021Q1

REPORT INFORMATION
  Report Type: Spontaneous
  Country: GB (occurrence: GB)
  Receive Date: 20210104
  Receipt Date: 20210119
  Transmission Date: 20210419
  Serious: Yes (Life-Threatening, Hospitalization)
  Sender: FDA-Public Use
  Company Number: GB-TEVA-2020-GB-1864317

PATIENT
  Age: 45 Year
  Sex: Female

DRUGS (4)
  1. VENLAFAXINE [Concomitant]
     Active Substance: VENLAFAXINE HYDROCHLORIDE
     Dosage: 150 MG
  2. FULTIUM?D3 [Concomitant]
     Active Substance: CHOLECALCIFEROL
     Dosage: 1 A MONTH 6 CAPSULE ? TAKES AT THE END OF THE MONTH,20000 IU
  3. LANSOPRAZOLE. [Concomitant]
     Active Substance: LANSOPRAZOLE
     Dosage: 30 MILLIGRAM DAILY; IN THE MORNING.
  4. TAMOXIFEN [Suspect]
     Active Substance: TAMOXIFEN
     Dosage: 20 MG

REACTIONS (1)
  - Intracardiac thrombus [Recovered/Resolved]
